FAERS Safety Report 5145306-6 (Version None)
Quarter: 2006Q4

REPORT INFORMATION
  Report Type: 
  Country: None (occurrence: None)
  Receive Date: 20061101
  Receipt Date: 20061016
  Transmission Date: 20070319
  Serious: Yes (Hospitalization)
  Sender: FDA-Public Use
  Company Number: 231146

PATIENT
  Age: 56 Year
  Sex: Male
  Weight: 73.3 kg

DRUGS (8)
  1. AVASTIN [Suspect]
     Indication: COLORECTAL CANCER METASTATIC
     Dosage: 5 MG/KG, Q2W, INTRAVENOUS
     Route: 042
     Dates: start: 20051024, end: 20061007
  2. IRINOTECAN HCL [Suspect]
     Indication: COLORECTAL CANCER METASTATIC
     Dosage: 247 + 549 MG, Q2W, INTRAVENOUS
     Route: 042
     Dates: start: 20051026, end: 20060928
  3. IRINOTECAN HCL [Suspect]
     Indication: COLORECTAL CANCER METASTATIC
     Dosage: 247 + 549 MG, Q2W, INTRAVENOUS
     Route: 042
     Dates: start: 20051024, end: 20061007
  4. FLUOROURACIL [Suspect]
     Indication: COLORECTAL CANCER METASTATIC
     Dosage: SEE IMAGE
     Route: 042
     Dates: start: 20051025, end: 20060928
  5. FLUOROURACIL [Suspect]
     Indication: COLORECTAL CANCER METASTATIC
     Dosage: SEE IMAGE
     Route: 042
     Dates: start: 20051024, end: 20061007
  6. LEUCOVORIN(LEUCOVORIN CACLIUM) [Suspect]
     Indication: COLORECTAL CANCER METASTATIC
     Dosage: 729 MG, Q2W, INTRAVENOUS
     Route: 042
     Dates: start: 20051024, end: 20061007
  7. LOSEC (OMEPRAZOLE) [Concomitant]
  8. AMLODIPINE BESYLATE [Concomitant]

REACTIONS (6)
  - BLOOD POTASSIUM DECREASED [None]
  - NAUSEA [None]
  - NEUTROPHIL COUNT INCREASED [None]
  - PAIN [None]
  - SMALL INTESTINAL OBSTRUCTION [None]
  - WHITE BLOOD CELL COUNT INCREASED [None]
